FAERS Safety Report 5148093-0 (Version None)
Quarter: 2006Q4

REPORT INFORMATION
  Report Type: 
  Country: None (occurrence: None)
  Receive Date: 20061110
  Receipt Date: 20061030
  Transmission Date: 20070319
  Serious: Yes (Hospitalization)
  Sender: FDA-Public Use
  Company Number: PHBS2006TR16863

PATIENT
  Age: 21 Year
  Sex: Female

DRUGS (4)
  1. CYCLOSPORINE [Suspect]
     Indication: BEHCET'S SYNDROME
     Dosage: 200 MG/D
     Route: 065
  2. COLCHICINE [Concomitant]
     Indication: BEHCET'S SYNDROME
     Dosage: 1.5 MG/D
     Route: 065
  3. AZATHIOPRINE [Concomitant]
     Indication: BEHCET'S SYNDROME
     Dosage: 150 MG/D
     Route: 065
  4. ASPIRIN [Concomitant]
     Indication: BEHCET'S SYNDROME
     Route: 065

REACTIONS (12)
  - C-REACTIVE PROTEIN INCREASED [None]
  - COAGULOPATHY [None]
  - ERYTHEMA NODOSUM [None]
  - EXTREMITY NECROSIS [None]
  - PERIPHERAL ISCHAEMIA [None]
  - PLATELET COUNT INCREASED [None]
  - RED BLOOD CELL SEDIMENTATION RATE INCREASED [None]
  - SKIN GRAFT [None]
  - TOE AMPUTATION [None]
  - UVEITIS [None]
  - VASCULITIS NECROTISING [None]
  - WOUND DEBRIDEMENT [None]
